FAERS Safety Report 5071621-0 (Version None)
Quarter: 2006Q3

REPORT INFORMATION
  Report Type: 
  Country: None (occurrence: None)
  Receive Date: 20060804
  Receipt Date: 20060718
  Transmission Date: 20061208
  Serious: Yes (Disabling, Other)
  Sender: FDA-Public Use
  Company Number: US-MERCK-0607USA03970

PATIENT
  Age: 49 Year
  Sex: Female
  Weight: 79 kg

DRUGS (6)
  1. SINGULAIR [Suspect]
     Indication: ASTHMA
     Route: 048
     Dates: start: 20010601, end: 20060101
  2. SINGULAIR [Suspect]
     Indication: RHINITIS ALLERGIC
     Route: 048
     Dates: start: 20010601, end: 20060101
  3. POLYGAM S/D [Concomitant]
     Indication: IMMUNODEFICIENCY
     Route: 042
     Dates: start: 20010101
  4. PLAQUENIL [Concomitant]
     Indication: NEUROPATHY
     Route: 048
  5. MUCINEX [Concomitant]
     Indication: HYPERSENSITIVITY
     Route: 065
  6. ADVAIR DISKUS 100/50 [Concomitant]
     Indication: ASTHMA
     Route: 055
     Dates: start: 20010101

REACTIONS (3)
  - ALLERGIC GRANULOMATOUS ANGIITIS [None]
  - INFLUENZA LIKE ILLNESS [None]
  - NEUROPATHY [None]
